FAERS Safety Report 5889485-1 (Version None)
Quarter: 2008Q3

REPORT INFORMATION
  Report Type: 
  Country: None (occurrence: None)
  Receive Date: 20080919
  Receipt Date: 20080909
  Transmission Date: 20090109
  Serious: Yes (Hospitalization, Other)
  Sender: FDA-Public Use
  Company Number: US-ELI_LILLY_AND_COMPANY-US200809002126

PATIENT
  Sex: Male

DRUGS (2)
  1. HUMULIN N [Suspect]
     Indication: DIABETES MELLITUS
     Dosage: 30 U, 2/D
     Dates: start: 20070301
  2. NOVOLOG [Concomitant]
     Dosage: WITH MEALS

REACTIONS (5)
  - CARDIOVASCULAR DISORDER [None]
  - DEBRIDEMENT [None]
  - HOSPITALISATION [None]
  - RETINAL HAEMORRHAGE [None]
  - TOE AMPUTATION [None]
